FAERS Safety Report 6457411-2 (Version None)
Quarter: 2009Q4

REPORT INFORMATION
  Report Type: 
  Country: None (occurrence: None)
  Receive Date: 20091125
  Receipt Date: 20091113
  Transmission Date: 20100525
  Serious: Yes (Other)
  Sender: FDA-Public Use
  Company Number: CA-SANOFI-AVENTIS-2009SA002686

PATIENT

DRUGS (6)
  1. ELOXATIN [Suspect]
     Route: 042
  2. ELOXATIN [Suspect]
     Route: 042
  3. FLUOROURACIL [Concomitant]
     Route: 042
  4. FLUOROURACIL [Concomitant]
     Route: 042
  5. FOLINIC ACID [Concomitant]
     Route: 042
  6. FOLINIC ACID [Concomitant]
     Route: 042

REACTIONS (1)
  - ACUTE CORONARY SYNDROME [None]
